FAERS Safety Report 18646954 (Version 1)
Quarter: 2020Q4

REPORT INFORMATION
  Report Type: Spontaneous
  Country: GB (occurrence: GB)
  Receive Date: 20201222
  Receipt Date: 20201222
  Transmission Date: 20210114
  Serious: Yes (Disabling, Other)
  Sender: FDA-Public Use
  Company Number: GB-TEVA-2020-GB-1859545

PATIENT
  Age: 66 Year
  Sex: Female
  Weight: 61.23 kg

DRUGS (7)
  1. ASCORBIC ACID. [Concomitant]
     Active Substance: ASCORBIC ACID
  2. TEVA UK ATORVASTATIN [Suspect]
     Active Substance: ATORVASTATIN
     Indication: ANGINA PECTORIS
     Dosage: 20MG
     Route: 048
     Dates: start: 202007, end: 20201116
  3. BISOPROLOL FUMARATE. [Concomitant]
     Active Substance: BISOPROLOL FUMARATE
  4. LEVOTHYROXINE SODIUM. [Concomitant]
     Active Substance: LEVOTHYROXINE SODIUM
  5. CALCICHEW D3 [Concomitant]
     Active Substance: CALCIUM\CHOLECALCIFEROL
  6. M+A PHARMACHEM ASPIRIN [Concomitant]
  7. ZINC PICOLINATE [Concomitant]
     Active Substance: ZINC PICOLINATE

REACTIONS (3)
  - Headache [Recovering/Resolving]
  - Malaise [Recovering/Resolving]
  - Tinnitus [Recovering/Resolving]

NARRATIVE: CASE EVENT DATE: 202007
